FAERS Safety Report 7419845-9 (Version None)
Quarter: 2011Q2

REPORT INFORMATION
  Report Type: 
  Country: None (occurrence: None)
  Receive Date: 20110418
  Receipt Date: 20110414
  Transmission Date: 20111010
  Serious: Yes (Hospitalization)
  Sender: FDA-Public Use
  Company Number: IT-SANOFI-AVENTIS-2010SA063537

PATIENT
  Age: 56 Year
  Sex: Female

DRUGS (6)
  1. ANTIHYPERTENSIVES [Concomitant]
  2. OTHER CYTOKINES AND IMMUNOMODULATING AGENTS [Suspect]
     Indication: RHEUMATOID ARTHRITIS
     Route: 042
     Dates: start: 20100706, end: 20100906
  3. METHOTREXATE [Suspect]
     Indication: RHEUMATOID ARTHRITIS
     Route: 030
     Dates: start: 20040101, end: 20101001
  4. ALL OTHER THERAPEUTIC PRODUCTS [Concomitant]
  5. ORAL ANTIDIABETICS [Concomitant]
  6. ARAVA [Suspect]
     Indication: RHEUMATOID ARTHRITIS
     Route: 048
     Dates: start: 20050101, end: 20101001

REACTIONS (4)
  - SENSORY LOSS [None]
  - ASTHENIA [None]
  - MYOCARDIAL INFARCTION [None]
  - ISCHAEMIC STROKE [None]
